FAERS Safety Report 6070356-5 (Version None)
Quarter: 2009Q1

REPORT INFORMATION
  Report Type: 
  Country: None (occurrence: None)
  Receive Date: 20090209
  Receipt Date: 20090202
  Transmission Date: 20090719
  Serious: Yes (Other)
  Sender: FDA-Public Use
  Company Number: US-ELI_LILLY_AND_COMPANY-US200902000470

PATIENT
  Sex: Male

DRUGS (5)
  1. HUMALOG [Suspect]
     Dosage: 40 U, UNK
  2. HUMALOG [Suspect]
  3. HUMALOG [Suspect]
  4. LANTUS [Concomitant]
  5. SYMLIN [Concomitant]

REACTIONS (5)
  - CERVICAL VERTEBRAL FRACTURE [None]
  - DRUG DISPENSING ERROR [None]
  - DYSPHONIA [None]
  - FALL [None]
  - VOCAL CORD INFLAMMATION [None]
